FAERS Safety Report 10871586 (Version 1)
Quarter: 2015Q1

REPORT INFORMATION
  Report Type: Spontaneous
  Country: US (occurrence: None)
  Receive Date: 20150223
  Receipt Date: 20150223
  Transmission Date: 20150721
  Serious: Yes (Other)
  Sender: FDA-Public Use
  Company Number: None

PATIENT
  Age: 75 Year
  Sex: Female
  Weight: 102.06 kg

DRUGS (5)
  1. CIPROFLOXACINE 500 MG NORTHSTAR RX LL [Suspect]
     Active Substance: CIPROFLOXACIN
     Indication: DIVERTICULITIS
     Dosage: 7 DAYS SUPPLY 14 TABS
     Route: 048
     Dates: start: 20150204, end: 20150209
  2. HYDROCHLOROTHIAZIDE (HCTZ) [Concomitant]
     Active Substance: HYDROCHLOROTHIAZIDE
  3. PRAMIPEXOLE [Concomitant]
     Active Substance: PRAMIPEXOLE
  4. AMOXAPINE. [Concomitant]
     Active Substance: AMOXAPINE
  5. BISOPROLOL FUMARATE. [Concomitant]
     Active Substance: BISOPROLOL FUMARATE

REACTIONS (7)
  - Abasia [None]
  - Pain in extremity [None]
  - Arthralgia [None]
  - Blood pressure increased [None]
  - Pain [None]
  - Stress [None]
  - Anxiety [None]

NARRATIVE: CASE EVENT DATE: 20150204
